FAERS Safety Report 17438180 (Version 1)
Quarter: 2020Q1

REPORT INFORMATION
  Report Type: Spontaneous
  Country: IN (occurrence: IN)
  Receive Date: 20200220
  Receipt Date: 20200220
  Transmission Date: 20200409
  Serious: Yes (Hospitalization, Other)
  Sender: FDA-Public Use
  Company Number: IN-MACLEODS PHARMACEUTICALS US LTD-MAC2020025190

PATIENT

DRUGS (5)
  1. TENOFOVIR 300MG [Suspect]
     Active Substance: TENOFOVIR DISOPROXIL
     Indication: HIV INFECTION
     Dosage: 300 MILLIGRAM, QD, TENOFOVIR DISOPROXIL FUMARATE (TDF)
     Route: 065
  2. RIFAMPICIN [Suspect]
     Active Substance: RIFAMPIN
     Indication: LYMPH NODE TUBERCULOSIS
     Dosage: UNK
     Route: 065
  3. COTRIMOXAZOLE [Concomitant]
     Active Substance: SULFAMETHOXAZOLE\TRIMETHOPRIM
     Indication: PRODUCT USED FOR UNKNOWN INDICATION
     Dosage: UNK, QD
     Route: 065
  4. LAMIVUDINE (3 TC) [Concomitant]
     Indication: HIV INFECTION
     Dosage: 300 MILLIGRAM, QD
     Route: 065
  5. EFAVIRENZ (EFV) [Concomitant]
     Indication: HIV INFECTION
     Dosage: 600 MILLIGRAM, QD
     Route: 065

REACTIONS (3)
  - Oropharyngeal candidiasis [Recovered/Resolved]
  - Renal tubular acidosis [Recovered/Resolved]
  - Drug hypersensitivity [Unknown]
